FAERS Safety Report 19236549 (Version 2)
Quarter: 2021Q2

REPORT INFORMATION
  Report Type: Report from Study
  Country: DE (occurrence: DE)
  Receive Date: 20210510
  Receipt Date: 20210513
  Transmission Date: 20210717
  Serious: Yes (Life-Threatening, Other)
  Sender: FDA-Public Use
  Company Number: NVSC2020DE032537

PATIENT
  Age: 53 Year
  Sex: Female
  Weight: 66 kg

DRUGS (4)
  1. LETROZOLE. [Suspect]
     Active Substance: LETROZOLE
     Indication: BREAST CANCER METASTATIC
     Dosage: 2.5 MG, QD
     Route: 048
     Dates: start: 20190916
  2. KISQALI [Suspect]
     Active Substance: RIBOCICLIB
     Indication: BREAST CANCER METASTATIC
     Dosage: 600 MG, QD (SCHEMA 21 DAYS INTAKE, 7 DAYS PAUSE, LAST ADMINISTRATION WAS ON 26 JAN 2020)
     Route: 048
     Dates: start: 20190916, end: 20200126
  3. KISQALI [Suspect]
     Active Substance: RIBOCICLIB
     Dosage: 600 MG, QD (SCHEMA 21 DAYS INTAKE, 7 DAYS PAUSE, LAST ADMINISTRATION WAS ON 26 JAN 2020)
     Route: 048
     Dates: start: 20200210, end: 20201011
  4. KISQALI [Suspect]
     Active Substance: RIBOCICLIB
     Dosage: 600 MG, QD (SCHEMA 21 DAYS INTAKE, 7 DAYS PAUSE, LAST ADMINISTRATION WAS ON 26 JAN 2020)
     Route: 048
     Dates: start: 20201026

REACTIONS (6)
  - Pulmonary embolism [Recovered/Resolved]
  - Bone contusion [Recovered/Resolved]
  - Venous thrombosis [Unknown]
  - Sputum purulent [Recovered/Resolved]
  - Haematoma [Recovered/Resolved]
  - Throat irritation [Recovered/Resolved]

NARRATIVE: CASE EVENT DATE: 20200128
